FAERS Safety Report 21083728 (Version 1)
Quarter: 2022Q3

REPORT INFORMATION
  Report Type: Spontaneous
  Country: US (occurrence: US)
  Receive Date: 20220714
  Receipt Date: 20220714
  Transmission Date: 20221026
  Serious: Yes (Death, Hospitalization, Other)
  Sender: FDA-Public Use
  Company Number: US-SA-2021SA218444

PATIENT
  Age: 96 Year
  Sex: Female

DRUGS (5)
  1. CARTIA XT [Suspect]
     Active Substance: DILTIAZEM HYDROCHLORIDE
     Indication: Cardiac disorder
     Route: 065
     Dates: end: 202105
  2. LASIX [Suspect]
     Active Substance: FUROSEMIDE
     Indication: Cardiac failure congestive
     Route: 048
     Dates: start: 201601, end: 202104
  3. LASIX [Suspect]
     Active Substance: FUROSEMIDE
     Route: 042
     Dates: start: 2021
  4. LASIX [Suspect]
     Active Substance: FUROSEMIDE
     Dosage: ONCE IN MORNING AND ONCE IN EVENING APR-2021
     Route: 048
     Dates: start: 202104
  5. WARFARIN [Concomitant]
     Active Substance: WARFARIN
     Indication: Product used for unknown indication

REACTIONS (25)
  - Sepsis [Fatal]
  - Pleural effusion [Fatal]
  - Coma [Unknown]
  - Haemorrhage [Not Recovered/Not Resolved]
  - Confusional state [Unknown]
  - Arthralgia [Not Recovered/Not Resolved]
  - Eye swelling [Not Recovered/Not Resolved]
  - Blood glucose decreased [Unknown]
  - Blood electrolytes decreased [Unknown]
  - Coagulopathy [Unknown]
  - Peripheral swelling [Unknown]
  - Urine odour abnormal [Unknown]
  - Blood calcium abnormal [Unknown]
  - Musculoskeletal stiffness [Unknown]
  - Vision blurred [Not Recovered/Not Resolved]
  - Dehydration [Not Recovered/Not Resolved]
  - Pruritus [Not Recovered/Not Resolved]
  - Somnolence [Unknown]
  - Tremor [Not Recovered/Not Resolved]
  - Fatigue [Not Recovered/Not Resolved]
  - Muscle spasms [Not Recovered/Not Resolved]
  - Constipation [Not Recovered/Not Resolved]
  - Asthenia [Unknown]
  - Dry mouth [Not Recovered/Not Resolved]
  - Headache [Not Recovered/Not Resolved]
